FAERS Safety Report 25816948 (Version 1)
Quarter: 2025Q3

REPORT INFORMATION
  Report Type: Spontaneous
  Country: CA (occurrence: CA)
  Receive Date: 20250918
  Receipt Date: 20250918
  Transmission Date: 20251021
  Serious: Yes (Hospitalization)
  Sender: PHARMACOSMOS A/S
  Company Number: None

PATIENT
  Age: 61 Year
  Sex: Female

DRUGS (1)
  1. MONOFERRIC [Suspect]
     Active Substance: FERRIC DERISOMALTOSE
     Indication: Product used for unknown indication

REACTIONS (6)
  - Anal incontinence [Recovered/Resolved]
  - Blood pressure decreased [Recovered/Resolved]
  - Heart rate irregular [Recovered/Resolved]
  - Back pain [Recovered/Resolved]
  - Frequent bowel movements [Recovered/Resolved]
  - Syncope [Recovered/Resolved]
